FAERS Safety Report 5016126-8 (Version None)
Quarter: 2006Q2

REPORT INFORMATION
  Report Type: 
  Country: None (occurrence: None)
  Receive Date: 20060601
  Receipt Date: 20060523
  Transmission Date: 20061013
  Serious: Yes (Hospitalization)
  Sender: FDA-Public Use
  Company Number: DE-BOEHRINGER INGELHEIM PHARMACEUTICALS, INC.-2006-DE-02641DE

PATIENT
  Sex: Female
  Weight: 37 kg

DRUGS (2)
  1. VIRAMUNE [Suspect]
     Indication: HIV INFECTION
     Route: 048
     Dates: start: 20060415, end: 20060503
  2. COMBIVIR [Concomitant]
     Indication: HIV INFECTION
     Route: 048
     Dates: start: 20060415, end: 20060503

REACTIONS (3)
  - CHOLESTASIS [None]
  - JOINT SWELLING [None]
  - PYREXIA [None]
